FAERS Safety Report 14142803 (Version 1)
Quarter: 2017Q4

REPORT INFORMATION
  Report Type: Spontaneous
  Country: GB (occurrence: GB)
  Receive Date: 20171030
  Receipt Date: 20171030
  Transmission Date: 20180321
  Serious: Yes (Life-Threatening, Hospitalization)
  Sender: FDA-Public Use
  Company Number: PHHO2017GB014174

PATIENT
  Sex: Female

DRUGS (1)
  1. ENTRESTO [Suspect]
     Active Substance: SACUBITRIL\VALSARTAN
     Indication: PRODUCT USED FOR UNKNOWN INDICATION
     Dosage: UNK
     Route: 065
     Dates: start: 201510

REACTIONS (6)
  - Sepsis [Unknown]
  - Critical illness [Unknown]
  - Tremor [Unknown]
  - Apparent death [Unknown]
  - Dyskinesia [Unknown]
  - Renal failure [Unknown]

NARRATIVE: CASE EVENT DATE: 201510
